FAERS Safety Report 15433218 (Version 2)
Quarter: 2019Q3

REPORT INFORMATION
  Report Type: Spontaneous
  Country: ZA (occurrence: ZA)
  Receive Date: 20180927
  Receipt Date: 20190923
  Transmission Date: 20191004
  Serious: No
  Sender: FDA-Public Use
  Company Number: ZA-NOVEN PHARMACEUTICALS, INC.-ZA2018000459

PATIENT

DRUGS (1)
  1. ESTRADIOL/NORETHISTERONE ACETATE [Suspect]
     Active Substance: ESTRADIOL\NORETHINDRONE ACETATE
     Indication: HOT FLUSH
     Dosage: UNK, UNKNOWN
     Route: 062

REACTIONS (2)
  - Product adhesion issue [Unknown]
  - Breast tenderness [Unknown]
